FAERS Safety Report 5002010-2 (Version None)
Quarter: 2006Q2

REPORT INFORMATION
  Report Type: 
  Country: None (occurrence: None)
  Receive Date: 20060515
  Receipt Date: 20050610
  Transmission Date: 20061013
  Serious: Yes (Hospitalization, Other)
  Sender: FDA-Public Use
  Company Number: US-MERCK-0506USA01831

PATIENT
  Age: 49 Year
  Sex: Female
  Weight: 77 kg

DRUGS (2)
  1. VIOXX [Suspect]
     Indication: NECK PAIN
     Route: 048
     Dates: start: 20040312, end: 20040319
  2. VIOXX [Suspect]
     Indication: HEADACHE
     Route: 048
     Dates: start: 20040312, end: 20040319

REACTIONS (13)
  - CEREBELLAR INFARCTION [None]
  - DEHYDRATION [None]
  - DIZZINESS [None]
  - GAIT DISTURBANCE [None]
  - HEADACHE [None]
  - HYPERKALAEMIA [None]
  - NAUSEA [None]
  - ORTHOSTATIC HYPOTENSION [None]
  - PARAESTHESIA [None]
  - TRANSIENT ISCHAEMIC ATTACK [None]
  - VERTIGO [None]
  - VERTIGO CNS ORIGIN [None]
  - VOMITING [None]
